FAERS Safety Report 23504618 (Version 2)
Quarter: 2024Q1

REPORT INFORMATION
  Report Type: Spontaneous
  Country: JP (occurrence: JP)
  Receive Date: 20240209
  Receipt Date: 20240228
  Transmission Date: 20240409
  Serious: Yes (Hospitalization, Other)
  Sender: FDA-Public Use
  Company Number: JP-JNJFOC-20240225167

PATIENT
  Age: 88 Year
  Sex: Female

DRUGS (8)
  1. TREMFYA [Suspect]
     Active Substance: GUSELKUMAB
     Indication: Pustular psoriasis
     Dosage: DOSE UNKNOWN
     Route: 058
     Dates: start: 20240104, end: 20240104
  2. TREMFYA [Suspect]
     Active Substance: GUSELKUMAB
  3. TREMFYA [Suspect]
     Active Substance: GUSELKUMAB
  4. ISCOTIN [Suspect]
     Active Substance: ISONIAZID
     Indication: Antibiotic prophylaxis
     Dosage: DOSE UNKNOWN
     Route: 048
     Dates: start: 20231204, end: 20240201
  5. PYRIDOXAL [Suspect]
     Active Substance: PYRIDOXAL
     Indication: Antibiotic prophylaxis
     Dosage: DOSE UNKNOWN
     Route: 048
     Dates: start: 20231204, end: 20240201
  6. ETRETINATE [Concomitant]
     Active Substance: ETRETINATE
     Indication: Pustular psoriasis
     Route: 048
  7. OLMESARTAN [Concomitant]
     Active Substance: OLMESARTAN
     Dosage: DOSE UNKNOWN
     Route: 065
  8. MAGNESIUM OXIDE [Concomitant]
     Active Substance: MAGNESIUM OXIDE
     Dosage: DOSE UNKNOWN
     Route: 065

REACTIONS (2)
  - Erythema multiforme [Recovered/Resolved]
  - Pustular psoriasis [Unknown]

NARRATIVE: CASE EVENT DATE: 20240101
